FAERS Safety Report 19932993 (Version 1)
Quarter: 2021Q4

REPORT INFORMATION
  Report Type: Report from Study
  Country: IL (occurrence: IL)
  Receive Date: 20211008
  Receipt Date: 20211008
  Transmission Date: 20220304
  Serious: Yes (Death, Life-Threatening, Hospitalization)
  Sender: FDA-Public Use
  Company Number: IL-JNJFOC-20210935095

PATIENT
  Age: 77 Year
  Sex: Male
  Weight: 72 kg

DRUGS (30)
  1. BORTEZOMIB [Suspect]
     Active Substance: BORTEZOMIB
     Indication: Plasma cell myeloma
     Dosage: 1.3 MILLIGRAM/SQ. METER, QD
     Route: 058
     Dates: start: 20201227, end: 20210128
  2. CILTACABTAGENE AUTOLEUCEL [Suspect]
     Active Substance: CILTACABTAGENE AUTOLEUCEL
     Indication: Plasma cell myeloma
     Dosage: UNK
     Route: 042
     Dates: start: 20210511, end: 20210511
  3. DARATUMUMAB [Suspect]
     Active Substance: DARATUMUMAB
     Indication: Plasma cell myeloma
     Dosage: 1800 MILLIGRAM
     Route: 058
     Dates: start: 20201227, end: 20210705
  4. LENALIDOMIDE [Suspect]
     Active Substance: LENALIDOMIDE
     Indication: Plasma cell myeloma
     Dosage: 10 MILLIGRAM, QD
     Route: 048
     Dates: start: 20201227, end: 20210725
  5. DEXAMETHASONE [Suspect]
     Active Substance: DEXAMETHASONE
     Indication: Plasma cell myeloma
     Dosage: 12 MILLIGRAM, QD
     Route: 048
     Dates: start: 20201227, end: 20210105
  6. FLUDARABINE [Concomitant]
     Active Substance: FLUDARABINE PHOSPHATE
     Indication: Plasma cell myeloma
     Dosage: 57 MILLIGRAM, QD
     Route: 042
     Dates: start: 20210506, end: 20210508
  7. CYCLOPHOSPHAMIDE [Concomitant]
     Active Substance: CYCLOPHOSPHAMIDE
     Indication: Plasma cell myeloma
     Dosage: 571 MILLIGRAM, QD
     Route: 042
     Dates: start: 20210506, end: 20210508
  8. SIMVASTATIN [Concomitant]
     Active Substance: SIMVASTATIN
     Indication: Hyperlipidaemia
     Dosage: 20 MILLIGRAM, QD
     Route: 048
  9. SUMATRIPTAN [Concomitant]
     Active Substance: SUMATRIPTAN
     Indication: Migraine
     Dosage: 50 MILLIGRAM
     Route: 048
  10. ACYCLOVIR [Concomitant]
     Active Substance: ACYCLOVIR
     Indication: Antiviral prophylaxis
     Dosage: 400 MILLIGRAM, QD
     Route: 048
     Dates: start: 20201227
  11. SULFAMETHOXAZOLE\TRIMETHOPRIM [Concomitant]
     Active Substance: SULFAMETHOXAZOLE\TRIMETHOPRIM
     Indication: Infection prophylaxis
     Dosage: UNK UNK, 2/WEEK
     Route: 048
     Dates: start: 20201227
  12. LYRICA [Concomitant]
     Active Substance: PREGABALIN
     Indication: Peripheral motor neuropathy
     Dosage: 0.75 MILLIGRAM, QD
     Route: 048
     Dates: start: 20210222
  13. LYRICA [Concomitant]
     Active Substance: PREGABALIN
     Indication: Pain in extremity
     Dosage: 300 MILLIGRAM, QD
     Route: 048
     Dates: start: 20210315
  14. DIPYRONE [Concomitant]
     Active Substance: DIPYRONE
     Indication: Peripheral motor neuropathy
     Dosage: UNK
  15. DIPYRONE [Concomitant]
     Active Substance: DIPYRONE
     Indication: Pain in extremity
  16. DIPYRONE [Concomitant]
     Active Substance: DIPYRONE
     Indication: Polyneuropathy
  17. DIPYRONE [Concomitant]
     Active Substance: DIPYRONE
     Indication: Guillain-Barre syndrome
  18. OXYCODONE [Concomitant]
     Active Substance: OXYCODONE
     Indication: Peripheral motor neuropathy
     Dosage: UNK
     Route: 065
  19. OXYCODONE [Concomitant]
     Active Substance: OXYCODONE
     Indication: Pain in extremity
  20. OXYCODONE [Concomitant]
     Active Substance: OXYCODONE
     Indication: Polyneuropathy
  21. OXYCODONE [Concomitant]
     Active Substance: OXYCODONE
     Indication: Guillain-Barre syndrome
  22. GRANISETRON [Concomitant]
     Active Substance: GRANISETRON
     Indication: Prophylaxis of nausea and vomiting
     Dosage: 1 MILLIGRAM, BID
     Route: 042
     Dates: start: 20210506
  23. VITAMIN D2 [Concomitant]
     Active Substance: ERGOCALCIFEROL
     Indication: Vitamin supplementation
     Dosage: 2000 INTERNATIONAL UNIT, QD
     Route: 048
     Dates: start: 20210528
  24. CIPROFLOXACIN [Concomitant]
     Active Substance: CIPROFLOXACIN
     Indication: Pyrexia
     Dosage: 400 MILLIGRAM, QD
     Route: 042
     Dates: start: 20210830
  25. CIPROFLOXACIN [Concomitant]
     Active Substance: CIPROFLOXACIN
     Indication: Diarrhoea
  26. CIPROFLOXACIN [Concomitant]
     Active Substance: CIPROFLOXACIN
     Indication: Gastroenteritis
  27. VANCOMYCIN [Concomitant]
     Active Substance: VANCOMYCIN
     Indication: Pyrexia
     Dosage: 125 MILLIGRAM, QID
     Route: 048
     Dates: start: 20210831
  28. VANCOMYCIN [Concomitant]
     Active Substance: VANCOMYCIN
     Indication: Diarrhoea
  29. VANCOMYCIN [Concomitant]
     Active Substance: VANCOMYCIN
     Indication: Gastroenteritis
  30. PREDNISONE [Concomitant]
     Active Substance: PREDNISONE
     Indication: Product used for unknown indication
     Dosage: 20 MILLIGRAM

REACTIONS (1)
  - Encephalopathy [Fatal]

NARRATIVE: CASE EVENT DATE: 20210914
